FAERS Safety Report 4354677-X (Version None)
Quarter: 2004Q2

REPORT INFORMATION
  Report Type: 
  Country: None (occurrence: None)
  Receive Date: 20040507
  Receipt Date: 20040428
  Transmission Date: 20050107
  Serious: Yes (Other)
  Sender: FDA-Public Use
  Company Number: PHNU2004DE01679

PATIENT
  Sex: Male

DRUGS (3)
  1. SANDOSTATIN [Suspect]
     Indication: ACROMEGALY
     Dosage: 50 UG, TID
     Route: 058
     Dates: start: 20040201, end: 20040428
  2. SANDOSTATIN [Suspect]
     Dosage: 50 UG, BID
     Route: 058
     Dates: start: 20040429
  3. MULTIVITAMIN [Concomitant]

REACTIONS (3)
  - GOUT [None]
  - OEDEMA PERIPHERAL [None]
  - PARAESTHESIA [None]
